FAERS Safety Report 25998636 (Version 1)
Quarter: 2025Q4

REPORT INFORMATION
  Report Type: Spontaneous
  Country: IN (occurrence: None)
  Receive Date: 20251105
  Receipt Date: 20251105
  Transmission Date: 20260117
  Serious: Yes (Other)
  Sender: ENCUBE ETHICALS PVT. LTD.
  Company Number: IN-Encube-002571

PATIENT
  Age: 32 Year
  Sex: Female

DRUGS (2)
  1. IMIQUIMOD [Suspect]
     Active Substance: IMIQUIMOD
     Indication: Vaginal dysplasia
  2. IMIQUIMOD [Suspect]
     Active Substance: IMIQUIMOD
     Indication: Cervical dysplasia

REACTIONS (3)
  - Lymphadenopathy [Recovering/Resolving]
  - Off label use [Unknown]
  - Tuberculosis [Unknown]
